FAERS Safety Report 13638480 (Version 1)
Quarter: 2017Q2

REPORT INFORMATION
  Report Type: Spontaneous
  Country: PT (occurrence: PT)
  Receive Date: 20170609
  Receipt Date: 20170609
  Transmission Date: 20170830
  Serious: Yes (Death, Life-Threatening, Hospitalization, Other)
  Sender: FDA-Public Use
  Company Number: PT-MYLANLABS-2017M1033026

PATIENT

DRUGS (3)
  1. RYTMONORM [Suspect]
     Active Substance: PROPAFENONE
     Indication: PRODUCT USED FOR UNKNOWN INDICATION
     Route: 065
  2. ELIQUIS [Interacting]
     Active Substance: APIXABAN
     Indication: PRODUCT USED FOR UNKNOWN INDICATION
     Route: 065
  3. BISOPROLOL [Concomitant]
     Active Substance: BISOPROLOL
     Indication: PRODUCT USED FOR UNKNOWN INDICATION
     Route: 065

REACTIONS (7)
  - Haematoma [Fatal]
  - Multiple organ dysfunction syndrome [Fatal]
  - Haemorrhagic diathesis [Fatal]
  - Cardio-respiratory arrest [Fatal]
  - Blood disorder [Fatal]
  - Melaena [Fatal]
  - Gingival bleeding [Fatal]

NARRATIVE: CASE EVENT DATE: 2016
